FAERS Safety Report 6409691-7 (Version None)
Quarter: 2009Q4

REPORT INFORMATION
  Report Type: 
  Country: None (occurrence: None)
  Receive Date: 20091022
  Receipt Date: 20091013
  Transmission Date: 20100525
  Serious: Yes (Other)
  Sender: FDA-Public Use
  Company Number: US-PFIZER INC-2006145281

PATIENT
  Sex: Female
  Weight: 91 kg

DRUGS (4)
  1. DEPO-PROVERA [Suspect]
     Indication: CONTRACEPTION
     Dosage: UNK
     Route: 030
     Dates: start: 19980101, end: 20051001
  2. LORTAB [Concomitant]
     Indication: PAIN
     Dosage: UNK
  3. PROZAC [Concomitant]
     Indication: STRESS
     Dosage: UNK
  4. ZOLOFT [Concomitant]
     Indication: STRESS
     Dosage: UNK

REACTIONS (2)
  - ANKLE FRACTURE [None]
  - OSTEOPOROSIS [None]
